FAERS Safety Report 4427361-1 (Version None)
Quarter: 2004Q3

REPORT INFORMATION
  Report Type: 
  Country: None (occurrence: None)
  Receive Date: 20040817
  Receipt Date: 20040728
  Transmission Date: 20050211
  Serious: Yes (Other)
  Sender: FDA-Public Use
  Company Number: PHEH2004US08168

PATIENT
  Age: 70 Year
  Sex: Female

DRUGS (3)
  1. ZELNORM [Suspect]
     Indication: IRRITABLE BOWEL SYNDROME
     Dosage: 3 MG, BID
     Route: 048
     Dates: start: 20040720
  2. TIAZAC [Concomitant]
     Indication: HYPERTENSION
  3. PRILOSEC [Concomitant]
     Indication: GASTRIC DISORDER
     Dosage: UNK, UNK

REACTIONS (2)
  - FAECES DISCOLOURED [None]
  - LOOSE STOOLS [None]
